FAERS Safety Report 7407389-X (Version None)
Quarter: 2011Q2

REPORT INFORMATION
  Report Type: 
  Country: None (occurrence: None)
  Receive Date: 20110411
  Receipt Date: 20110329
  Transmission Date: 20111010
  Serious: Yes (Hospitalization)
  Sender: FDA-Public Use
  Company Number: US-MERCK-1101USA00639

PATIENT
  Age: 39 Year
  Sex: Male
  Weight: 84 kg

DRUGS (18)
  1. LOVAZA [Concomitant]
     Route: 065
  2. ANDROGEL [Concomitant]
     Route: 065
  3. ISENTRESS [Suspect]
     Route: 048
     Dates: start: 20110101
  4. OPANA [Concomitant]
     Route: 065
  5. ZOFRAN [Concomitant]
     Route: 065
  6. FLOMAX [Concomitant]
     Route: 065
  7. VIRAMUNE [Concomitant]
     Route: 065
     Dates: start: 20080601
  8. PRAVACHOL [Concomitant]
     Route: 065
  9. ISENTRESS [Suspect]
     Indication: HIV INFECTION
     Route: 048
     Dates: start: 20080601, end: 20110101
  10. PRAVASTATIN SODIUM [Concomitant]
     Route: 065
  11. DILAUDID [Concomitant]
     Route: 065
  12. FLEXERIL [Concomitant]
     Route: 048
  13. SEROQUEL [Concomitant]
     Route: 065
  14. CARDURA [Concomitant]
     Route: 065
  15. EPZICOM [Concomitant]
     Route: 065
     Dates: start: 20080601
  16. EFFEXOR [Concomitant]
     Route: 065
  17. DIAZEPAN [Concomitant]
     Route: 065
  18. FENOFIBRATE [Concomitant]
     Route: 065

REACTIONS (2)
  - PARANOIA [None]
  - HALLUCINATION, AUDITORY [None]
